FAERS Safety Report 7771650-X (Version None)
Quarter: 2011Q3

REPORT INFORMATION
  Report Type: 
  Country: None (occurrence: None)
  Receive Date: 20110922
  Receipt Date: 20100527
  Transmission Date: 20111222
  Serious: No
  Sender: FDA-Public Use
  Company Number: US-ASTRAZENECA-2010SE50822

PATIENT
  Age: 14607 Day
  Sex: Female
  Weight: 104.3 kg

DRUGS (5)
  1. PROZAC [Concomitant]
     Dates: start: 20070501
  2. SEROQUEL [Suspect]
     Route: 048
     Dates: start: 20060629
  3. FLUOXETINE [Concomitant]
     Dates: start: 20060524
  4. SEROQUEL [Suspect]
     Route: 048
     Dates: start: 20060418
  5. ABILIFY [Concomitant]
     Dates: start: 20070319

REACTIONS (3)
  - TYPE 1 DIABETES MELLITUS [None]
  - TYPE 2 DIABETES MELLITUS [None]
  - OBESITY [None]
